FAERS Safety Report 15196119 (Version 1)
Quarter: 2018Q3

REPORT INFORMATION
  Report Type: Spontaneous
  Country: FR (occurrence: FR)
  Receive Date: 20180725
  Receipt Date: 20180725
  Transmission Date: 20181010
  Serious: Yes (Other)
  Sender: FDA-Public Use
  Company Number: FR-PFIZER INC-2018292617

PATIENT
  Age: 51 Year
  Sex: Male
  Weight: 78 kg

DRUGS (13)
  1. BIPRETERAX /06377001/ [Concomitant]
     Active Substance: INDAPAMIDE\PERINDOPRIL
  2. TAHOR [Suspect]
     Active Substance: ATORVASTATIN CALCIUM
     Indication: DYSLIPIDAEMIA
     Dosage: 40 MG, 1X/DAY
     Route: 048
     Dates: start: 2014, end: 20180615
  3. NEORAL [Interacting]
     Active Substance: CYCLOSPORINE
     Indication: ORGAN TRANSPLANT
     Dosage: 200 MG, 1X/DAY
     Route: 048
     Dates: start: 2009
  4. SODIUM BICARBONATE. [Concomitant]
     Active Substance: SODIUM BICARBONATE
  5. SOLUPRED /00016217/ [Concomitant]
     Active Substance: PREDNISOLONE SODIUM METAZOATE
  6. ORBENINE [Concomitant]
     Active Substance: CLOXACILLIN SODIUM
  7. BACTRIM [Suspect]
     Active Substance: SULFAMETHOXAZOLE\TRIMETHOPRIM
     Dosage: 3 DF, 1X/DAY
     Route: 048
     Dates: start: 20180409
  8. MYFORTIC [Concomitant]
     Active Substance: MYCOPHENOLATE SODIUM
  9. PROCORALAN [Concomitant]
     Active Substance: IVABRADINE
  10. INEXIUM /01479302/ [Concomitant]
     Active Substance: ESOMEPRAZOLE MAGNESIUM
  11. SERETIDE [Concomitant]
     Active Substance: FLUTICASONE PROPIONATE\SALMETEROL XINAFOATE
  12. HYPERIUM [Concomitant]
     Active Substance: RILMENIDINE PHOSPHATE
  13. PREVISCAN /00789001/ [Interacting]
     Active Substance: FLUINDIONE
     Dosage: 1.5 DF, 1X/DAY
     Route: 048
     Dates: start: 20111110, end: 20180611

REACTIONS (3)
  - International normalised ratio increased [Recovering/Resolving]
  - Drug interaction [Recovering/Resolving]
  - Rhabdomyolysis [Recovering/Resolving]

NARRATIVE: CASE EVENT DATE: 20180611
